FAERS Safety Report 18466800 (Version 1)
Quarter: 2020Q4

REPORT INFORMATION
  Report Type: Spontaneous
  Country: RU (occurrence: RU)
  Receive Date: 20201105
  Receipt Date: 20201105
  Transmission Date: 20210114
  Serious: Yes (Hospitalization)
  Sender: FDA-Public Use
  Company Number: RU-TEVA-2020-RU-1846061

PATIENT
  Age: 12 Year
  Sex: Female

DRUGS (16)
  1. CISPLATIN. [Suspect]
     Active Substance: CISPLATIN
     Indication: NEUROBLASTOMA
     Dosage: N5 REGIMEN
     Route: 065
  2. NIVOLUMAB [Concomitant]
     Active Substance: NIVOLUMAB
     Indication: NEUROBLASTOMA
     Dosage: 3 CYCLES
     Route: 050
  3. TOPOTECAN [Concomitant]
     Active Substance: TOPOTECAN HYDROCHLORIDE
     Indication: NEUROBLASTOMA
     Dosage: N8 REGIMEN
     Route: 065
  4. TEMOZOLOMIDE. [Concomitant]
     Active Substance: TEMOZOLOMIDE
     Indication: NEUROBLASTOMA
     Dosage: RIST REGIMEN
     Route: 065
  5. ISOTRETINOIN. [Suspect]
     Active Substance: ISOTRETINOIN
     Indication: NEUROBLASTOMA
     Dosage: FOR 14 DAYS WITH 14 DAYS BREAK
     Route: 065
  6. DOXORUBICIN [Suspect]
     Active Substance: DOXORUBICIN
     Indication: NEUROBLASTOMA
     Dosage: N6 REGIMEN
     Route: 065
  7. CYCLOPHOSPHAMIDE. [Concomitant]
     Active Substance: CYCLOPHOSPHAMIDE
     Indication: NEUROBLASTOMA
     Dosage: N8 REGIMEN
     Route: 065
  8. ETOPOSIDE. [Suspect]
     Active Substance: ETOPOSIDE
     Indication: NEUROBLASTOMA
     Dosage: N5 AND N8 REGIMEN
     Route: 065
  9. IRINOTECAN [Concomitant]
     Active Substance: IRINOTECAN
     Indication: NEUROBLASTOMA
     Dosage: RIST REGIMEN
     Route: 065
  10. VINCRISTINE [Suspect]
     Active Substance: VINCRISTINE
     Indication: NEUROBLASTOMA
     Dosage: N6 REGIMEN
     Route: 065
  11. DACARBACINE [Suspect]
     Active Substance: DACARBAZINE
     Indication: NEUROBLASTOMA
     Dosage: N6 REGIMEN
     Route: 065
  12. IFOSFAMIDE. [Suspect]
     Active Substance: IFOSFAMIDE
     Indication: NEUROBLASTOMA
     Dosage: N6 REGIMEN
     Route: 065
  13. SPRYCEL [Suspect]
     Active Substance: DASATINIB
     Indication: NEUROBLASTOMA
     Dosage: RIST REGIMEN
     Route: 065
  14. RAPAMYCIN [Concomitant]
     Active Substance: SIROLIMUS
     Indication: NEUROBLASTOMA
     Dosage: RIST REGIMEN
     Route: 065
  15. VINDESINE [Suspect]
     Active Substance: VINDESINE
     Indication: NEUROBLASTOMA
     Dosage: N5 REGIMEN
     Route: 065
  16. NIVOLUMAB [Concomitant]
     Active Substance: NIVOLUMAB
     Indication: NEUROBLASTOMA
     Route: 050

REACTIONS (2)
  - Skin toxicity [Unknown]
  - Drug ineffective [Unknown]
